FAERS Safety Report 9222286 (Version 3)
Quarter: 2013Q2

REPORT INFORMATION
  Report Type: Spontaneous
  Country: AR (occurrence: AR)
  Receive Date: 20130410
  Receipt Date: 20130617
  Transmission Date: 20140414
  Serious: Yes (Other)
  Sender: FDA-Public Use
  Company Number: PHHY2013AR034338

PATIENT
  Sex: Female

DRUGS (1)
  1. DIOVAN D [Suspect]
     Indication: HYPERTENSION
     Dosage: 1 DF(160/UNKNOWN MG), PER DAY
     Route: 048

REACTIONS (7)
  - Neuropathy peripheral [Recovering/Resolving]
  - Hypoaesthesia [Recovered/Resolved]
  - Demyelination [Recovering/Resolving]
  - Vertigo positional [Recovered/Resolved]
  - Dizziness postural [Recovering/Resolving]
  - Swelling [Recovering/Resolving]
  - Gait disturbance [Recovering/Resolving]
